FAERS Safety Report 6539463-4 (Version None)
Quarter: 2010Q1

REPORT INFORMATION
  Report Type: 
  Country: None (occurrence: None)
  Receive Date: 20100115
  Receipt Date: 20100111
  Transmission Date: 20100710
  Serious: Yes (Hospitalization)
  Sender: FDA-Public Use
  Company Number: A0800709A

PATIENT
  Age: 63 Year
  Sex: Female
  Weight: 77.3 kg

DRUGS (1)
  1. AVANDIA [Suspect]
     Indication: DIABETES MELLITUS
     Dosage: 8MG PER DAY
     Route: 048
     Dates: start: 20030501

REACTIONS (4)
  - CARDIOVASCULAR DISORDER [None]
  - DISABILITY [None]
  - HIP FRACTURE [None]
  - VISUAL IMPAIRMENT [None]
